FAERS Safety Report 21975656 (Version 1)
Quarter: 2023Q1

REPORT INFORMATION
  Report Type: Spontaneous
  Country: US (occurrence: US)
  Receive Date: 20230210
  Receipt Date: 20230210
  Transmission Date: 20230417
  Serious: No
  Sender: FDA-Public Use
  Company Number: US-SANOFI-01479028

PATIENT
  Sex: Female

DRUGS (3)
  1. DUPIXENT [Suspect]
     Active Substance: DUPILUMAB
     Indication: Eczema
     Dosage: 300 MG, QOW
  2. CORTISONE [Suspect]
     Active Substance: CORTISONE
     Indication: Periarthritis
     Dosage: UNK
     Dates: start: 20230130
  3. CORTISONE [Suspect]
     Active Substance: CORTISONE
     Indication: Joint range of motion decreased

REACTIONS (3)
  - Periarthritis [Unknown]
  - Joint range of motion decreased [Unknown]
  - Drug interaction [Unknown]
